FAERS Safety Report 15274931 (Version 1)
Quarter: 2018Q3

REPORT INFORMATION
  Report Type: Spontaneous
  Country: RO (occurrence: RO)
  Receive Date: 20180814
  Receipt Date: 20180814
  Transmission Date: 20181010
  Serious: Yes (Life-Threatening, Hospitalization)
  Sender: FDA-Public Use
  Company Number: RO-TEVA-2018-RO-944372

PATIENT
  Age: 28 Year
  Sex: Female
  Weight: 60 kg

DRUGS (3)
  1. TRILEPTAL [Suspect]
     Active Substance: OXCARBAZEPINE
     Indication: SEIZURE
     Route: 065
  2. ERCEFURYL 200 MG [Suspect]
     Active Substance: NIFUROXAZIDE
     Indication: DIARRHOEA
     Route: 048
  3. CARBAMAZEPINE. [Suspect]
     Active Substance: CARBAMAZEPINE
     Indication: SEIZURE
     Route: 048

REACTIONS (4)
  - Urticaria [Recovered/Resolved]
  - Swollen tongue [Unknown]
  - Face oedema [Unknown]
  - Pruritus [Recovered/Resolved]

NARRATIVE: CASE EVENT DATE: 20171101
